FAERS Safety Report 9712771 (Version 1)
Quarter: 2013Q4

REPORT INFORMATION
  Report Type: Spontaneous
  Country: JP (occurrence: JP)
  Receive Date: 20131126
  Receipt Date: 20131126
  Transmission Date: 20140711
  Serious: Yes (Death)
  Sender: FDA-Public Use
  Company Number: JP-TEVA-446785ISR

PATIENT
  Age: 41 Year
  Sex: Female

DRUGS (2)
  1. CARBOPLATIN IV DRIP INFUSION (SAWAI) [Suspect]
     Indication: UTERINE CANCER
     Route: 041
  2. PACLITAXEL INJECTION (SAWAI) [Suspect]
     Indication: UTERINE CANCER
     Route: 042

REACTIONS (3)
  - Dyspnoea [Fatal]
  - Tachycardia paroxysmal [Fatal]
  - Death [Fatal]
